FAERS Safety Report 5371312-2 (Version None)
Quarter: 2007Q2

REPORT INFORMATION
  Report Type: 
  Country: None (occurrence: None)
  Receive Date: 20070615
  Receipt Date: 20061128
  Transmission Date: 20071010
  Serious: Yes (Other)
  Sender: FDA-Public Use
  Company Number: 200618302US

PATIENT
  Age: 52 Year
  Sex: Female
  Weight: 109 kg

DRUGS (11)
  1. LANTUS [Suspect]
     Indication: DIABETES MELLITUS NON-INSULIN-DEPENDENT
     Dosage: 10 U QPM
     Dates: start: 20060901
  2. OPTICLIK [Suspect]
     Indication: DIABETES MELLITUS NON-INSULIN-DEPENDENT
     Dates: start: 20060901
  3. OPTICLIK [Suspect]
     Indication: DIABETES MELLITUS NON-INSULIN-DEPENDENT
  4. HUMALOG [Concomitant]
  5. LISINOPRIL [Concomitant]
  6. AMBIEN [Concomitant]
  7. ASA, PARACETAMOL, HYDROCODONE BITARTRATE (VICODIN) [Concomitant]
  8. DIAZEPAM [Concomitant]
  9. LISINOPRIL AND HYDROCHLOROTHIAZIDE [Concomitant]
  10. METFORMIN, GLIBENCLAMIDE (GLUCOVANCE) [Concomitant]
  11. .. [Concomitant]

REACTIONS (2)
  - HYPOGLYCAEMIA [None]
  - MALAISE [None]
